FAERS Safety Report 6195464-X (Version None)
Quarter: 2009Q2

REPORT INFORMATION
  Report Type: 
  Country: None (occurrence: None)
  Receive Date: 20090519
  Receipt Date: 20090514
  Transmission Date: 20091009
  Serious: Yes (Death, Hospitalization)
  Sender: FDA-Public Use
  Company Number: NL-SANOFI-SYNTHELABO-F01200900468

PATIENT
  Sex: Male

DRUGS (6)
  1. CODEINE [Concomitant]
     Dosage: UNK
     Route: 065
  2. FUROSEMIDE [Concomitant]
     Dosage: UNK
     Route: 065
  3. NEXIUM [Concomitant]
     Dosage: UNK
     Route: 065
  4. AMITRIPTLINE HYDROCHLORIDE TAB [Concomitant]
     Dosage: UNK
     Route: 065
  5. CAPECITABINE [Suspect]
     Indication: COLORECTAL CANCER
     Dosage: TWICE DAILY FROM DAY 1 TO DAY 14 PER THREE WEEKS
     Route: 048
     Dates: end: 20051031
  6. OXALIPLATIN [Suspect]
     Indication: COLORECTAL CANCER
     Route: 041
     Dates: start: 20051020, end: 20051020

REACTIONS (2)
  - DISEASE PROGRESSION [None]
  - MALIGNANT PLEURAL EFFUSION [None]
